FAERS Safety Report 6832066-3 (Version None)
Quarter: 2010Q3

REPORT INFORMATION
  Report Type: 
  Country: None (occurrence: None)
  Receive Date: 20100712
  Receipt Date: 20100702
  Transmission Date: 20110219
  Serious: Yes (Congenital Anomaly)
  Sender: FDA-Public Use
  Company Number: GB-GILEAD-2010-0030218

PATIENT
  Sex: Female

DRUGS (3)
  1. TRUVADA [Suspect]
     Indication: PROPHYLAXIS AGAINST HIV INFECTION
     Route: 064
     Dates: start: 20050809
  2. ZIAGEN [Concomitant]
     Route: 064
  3. KALETRA [Concomitant]
     Route: 064

REACTIONS (1)
  - ULTRASOUND ANTENATAL SCREEN ABNORMAL [None]
